FAERS Safety Report 8393039-5 (Version None)
Quarter: 2012Q2

REPORT INFORMATION
  Report Type: 
  Country: None (occurrence: None)
  Receive Date: 20120529
  Receipt Date: 20120327
  Transmission Date: 20120825
  Serious: No
  Sender: FDA-Public Use
  Company Number: US-ABBOTT-12P-163-0919349-00

PATIENT
  Sex: Male
  Weight: 77.18 kg

DRUGS (3)
  1. PRILOSEC [Concomitant]
     Indication: GASTROOESOPHAGEAL REFLUX DISEASE
  2. FORTEO [Concomitant]
     Indication: BONE DENSITY DECREASED
  3. ANDROGEL [Suspect]
     Indication: BLOOD TESTOSTERONE DECREASED
     Dates: start: 20120112, end: 20120207

REACTIONS (1)
  - GYNAECOMASTIA [None]
